FAERS Safety Report 6980146-4 (Version None)
Quarter: 2010Q3

REPORT INFORMATION
  Report Type: 
  Country: None (occurrence: None)
  Receive Date: 20100914
  Receipt Date: 20100907
  Transmission Date: 20110219
  Serious: Yes (Other)
  Sender: FDA-Public Use
  Company Number: AU-WYE-G06521510

PATIENT
  Sex: Female

DRUGS (2)
  1. PRISTIQ [Suspect]
     Indication: DEPRESSED MOOD
     Dosage: 50MG
     Dates: start: 20100701, end: 20100801
  2. DIAZEPAM [Concomitant]

REACTIONS (1)
  - DEMENTIA [None]
